FAERS Safety Report 7659898-6 (Version None)
Quarter: 2011Q3

REPORT INFORMATION
  Report Type: 
  Country: None (occurrence: None)
  Receive Date: 20110805
  Receipt Date: 20110718
  Transmission Date: 20111222
  Serious: No
  Sender: FDA-Public Use
  Company Number: US-B.I. PHARMACEUTICALS,INC./RIDGEFIELD-2011-BP-17988BP

PATIENT
  Sex: Female

DRUGS (14)
  1. CENTRUM SILVER [Concomitant]
     Route: 048
  2. ACTOS [Concomitant]
     Dosage: 30 MG
     Route: 048
  3. TRICOR [Concomitant]
     Dosage: 48 MG
     Route: 048
  4. AVAPRO [Concomitant]
     Dosage: 300 MG
     Route: 048
  5. VITAMIN D [Concomitant]
     Route: 048
  6. DILTIAZEM [Concomitant]
     Dosage: 120 MG
     Route: 048
  7. TRADJENTA [Suspect]
     Indication: TYPE 2 DIABETES MELLITUS
     Dosage: 5 MG
     Route: 048
     Dates: start: 20110608
  8. FORTE [Concomitant]
     Dosage: 450 MG
     Route: 048
  9. GLIMEPIRIDE [Concomitant]
     Dosage: 8 MG
     Route: 048
  10. CITRACAL [Concomitant]
     Dosage: 900 MG
     Route: 048
  11. ECTSY [Concomitant]
     Dosage: 1500 MG
     Route: 048
  12. FISH OIL [Concomitant]
     Dosage: 2000 MG
     Route: 048
  13. OMEPRAZOLE [Concomitant]
     Dosage: 20 MG
     Route: 048
  14. ASPIRIN [Concomitant]
     Dosage: 81 MG
     Route: 048

REACTIONS (1)
  - BLOOD GLUCOSE INCREASED [None]
